FAERS Safety Report 19824282 (Version 1)
Quarter: 2021Q3

REPORT INFORMATION
  Report Type: Spontaneous
  Country: US (occurrence: US)
  Receive Date: 20210909
  Receipt Date: 20210909
  Transmission Date: 20211014
  Serious: Yes (Hospitalization)
  Sender: FDA-Public Use
  Company Number: None

PATIENT
  Sex: Female
  Weight: 74.84 kg

DRUGS (24)
  1. PROAIR HFA [Concomitant]
     Active Substance: ALBUTEROL SULFATE
  2. ALBUTEROL. [Concomitant]
     Active Substance: ALBUTEROL
  3. POTASSIUM [Concomitant]
     Active Substance: POTASSIUM
  4. SIMVASTATIN. [Concomitant]
     Active Substance: SIMVASTATIN
  5. BABY ASPIRIN [Concomitant]
     Active Substance: ASPIRIN
  6. OMEGA?3 ACIDS [Concomitant]
     Active Substance: OMEGA-3 FATTY ACIDS
  7. FISH OIL [Concomitant]
     Active Substance: FISH OIL
  8. CRANBERRY FRUIT [Concomitant]
  9. BIOTIN [Concomitant]
     Active Substance: BIOTIN
  10. FOLIC ACID. [Concomitant]
     Active Substance: FOLIC ACID
  11. SUDAFED [Concomitant]
     Active Substance: PSEUDOEPHEDRINE HYDROCHLORIDE
  12. ETHAMBUTOL 400MG TABLETS [Suspect]
     Active Substance: ETHAMBUTOL HYDROCHLORIDE
     Indication: PNEUMONIA
     Dosage: QUANTITY:3 DF DOSAGE FORM;?3X^S  A WEEK  MON. WED. + FRI.
     Route: 048
     Dates: start: 20191218, end: 20200113
  13. LEVOTHYROXINE. [Concomitant]
     Active Substance: LEVOTHYROXINE
  14. TRAMADOL. [Concomitant]
     Active Substance: TRAMADOL
  15. MILK THISTLE [Concomitant]
     Active Substance: DIETARY SUPPLEMENT\HERBALS\MILK THISTLE
  16. ETHAMBUTOL 400MG TABLETS [Suspect]
     Active Substance: ETHAMBUTOL HYDROCHLORIDE
     Indication: MYCOBACTERIAL INFECTION
     Dosage: QUANTITY:3 DF DOSAGE FORM;?3X^S  A WEEK  MON. WED. + FRI.
     Route: 048
     Dates: start: 20191218, end: 20200113
  17. SUPER ^B^ COMPLEX [Concomitant]
  18. TURMERIC/CURCUMIN [Concomitant]
  19. MAGNESIUM [Concomitant]
     Active Substance: MAGNESIUM
  20. IPRATORPIUM/BROMIDE [Concomitant]
  21. MSM [Concomitant]
     Active Substance: DIMETHYL SULFONE
  22. HYDROCHLOROTHIAZIDE. [Concomitant]
     Active Substance: HYDROCHLOROTHIAZIDE
  23. FLUTICASONE. [Concomitant]
     Active Substance: FLUTICASONE
  24. CORAL CALCIUM [Concomitant]
     Active Substance: DIETARY SUPPLEMENT

REACTIONS (11)
  - Illness [None]
  - Therapy interrupted [None]
  - Diarrhoea [None]
  - Discomfort [None]
  - Eye disorder [None]
  - Abdominal pain upper [None]
  - Myalgia [None]
  - Chills [None]
  - Restlessness [None]
  - Pain in extremity [None]
  - Retching [None]
